FAERS Safety Report 5278818-5 (Version None)
Quarter: 2007Q1

REPORT INFORMATION
  Report Type: 
  Country: None (occurrence: None)
  Receive Date: 20070328
  Receipt Date: 20070322
  Transmission Date: 20070707
  Serious: Yes (Other)
  Sender: FDA-Public Use
  Company Number: BR-JNJFOC-20070305819

PATIENT
  Age: 28 Year
  Sex: Female
  Weight: 80 kg

DRUGS (3)
  1. ACETAMINOPHEN W/ CODEINE [Suspect]
     Indication: PROCEDURAL PAIN
     Route: 048
  2. CEPHALEXIN [Concomitant]
     Indication: TOOTH INFECTION
     Route: 048
  3. VOLTAREN [Concomitant]
     Indication: TOOTH INFECTION
     Route: 048

REACTIONS (1)
  - HYPOAESTHESIA FACIAL [None]
